FAERS Safety Report 7967833-6 (Version None)
Quarter: 2011Q4

REPORT INFORMATION
  Report Type: 
  Country: None (occurrence: None)
  Receive Date: 20111207
  Receipt Date: 20111122
  Transmission Date: 20120403
  Serious: Yes (Hospitalization, Other)
  Sender: FDA-Public Use
  Company Number: JPI-P-018390

PATIENT
  Age: 59 Year
  Sex: Female

DRUGS (2)
  1. XYREM [Suspect]
     Indication: CYSTITIS INTERSTITIAL
     Dosage: 6 GM (3 GM, 2 IN 1 D), ORAL; 6.5 GM, 2 IN 1 D), ORAL
     Route: 048
     Dates: start: 20050803, end: 20111120
  2. XYREM [Suspect]
     Indication: CYSTITIS INTERSTITIAL
     Dosage: 6 GM (3 GM, 2 IN 1 D), ORAL; 6.5 GM, 2 IN 1 D), ORAL
     Route: 048
     Dates: start: 20111121

REACTIONS (4)
  - CONDITION AGGRAVATED [None]
  - CYSTITIS INTERSTITIAL [None]
  - ULCER [None]
  - UTERINE LEIOMYOMA [None]
